FAERS Safety Report 21199505 (Version 2)
Quarter: 2023Q4

REPORT INFORMATION
  Report Type: Spontaneous
  Country: GB (occurrence: GB)
  Receive Date: 20220811
  Receipt Date: 20231117
  Transmission Date: 20240109
  Serious: Yes (Other)
  Sender: FDA-Public Use
  Company Number: GB-TEVA-2022-GB-2062438

PATIENT
  Age: 40 Year
  Sex: Female

DRUGS (6)
  1. VINCRISTINE [Suspect]
     Active Substance: VINCRISTINE
     Indication: Astroblastoma
     Dosage: RECEIVED TOTAL 4 CYCLES
     Route: 065
     Dates: start: 201807, end: 201812
  2. TEMOZOLOMIDE [Suspect]
     Active Substance: TEMOZOLOMIDE
     Indication: Astroblastoma
     Route: 065
     Dates: start: 201102, end: 201103
  3. TEMOZOLOMIDE [Suspect]
     Active Substance: TEMOZOLOMIDE
     Dosage: FOR FIRST CYCLE
     Route: 065
     Dates: start: 2011, end: 2011
  4. TEMOZOLOMIDE [Suspect]
     Active Substance: TEMOZOLOMIDE
     Dosage: FROM SECOND CYCLE
     Route: 065
     Dates: start: 2011, end: 2011
  5. PROCARBAZINE [Suspect]
     Active Substance: PROCARBAZINE
     Indication: Astroblastoma
     Dosage: RECEIVED TOTAL 4 CYCLES
     Route: 065
     Dates: start: 201807, end: 201812
  6. LOMUSTINE [Suspect]
     Active Substance: LOMUSTINE
     Indication: Astroblastoma
     Dosage: RECEIVED TOTAL 4 CYCLES
     Route: 065
     Dates: start: 201807, end: 201812

REACTIONS (2)
  - Myelosuppression [Unknown]
  - Haematotoxicity [Unknown]

NARRATIVE: CASE EVENT DATE: 20110101
